FAERS Safety Report 5736066-6 (Version None)
Quarter: 2008Q2

REPORT INFORMATION
  Report Type: 
  Country: None (occurrence: None)
  Receive Date: 20080509
  Receipt Date: 20080501
  Transmission Date: 20081010
  Serious: Yes (Hospitalization)
  Sender: FDA-Public Use
  Company Number: 2007BI025040

PATIENT
  Age: 54 Year
  Sex: Female

DRUGS (1)
  1. AVONEX [Suspect]
     Indication: MULTIPLE SCLEROSIS
     Dosage: 30 UG;QW;IM
     Route: 030
     Dates: start: 20050110, end: 20080327

REACTIONS (6)
  - BACK PAIN [None]
  - BLOOD GLUCOSE INCREASED [None]
  - CYSTITIS [None]
  - KIDNEY INFECTION [None]
  - PYREXIA [None]
  - SEPSIS [None]
